FAERS Safety Report 5185078-2 (Version None)
Quarter: 2006Q4

REPORT INFORMATION
  Report Type: 
  Country: None (occurrence: None)
  Receive Date: 20061220
  Receipt Date: 20060530
  Transmission Date: 20070319
  Serious: No
  Sender: FDA-Public Use
  Company Number: US-GLAXOSMITHKLINE-A0607213A

PATIENT
  Age: 39 Year
  Sex: Female

DRUGS (2)
  1. NICODERM CQ [Suspect]
  2. LEVOXYL [Concomitant]

REACTIONS (4)
  - HEADACHE [None]
  - MALAISE [None]
  - NIGHTMARE [None]
  - PAIN [None]
